FAERS Safety Report 8988357 (Version 3)
Quarter: 2013Q1

REPORT INFORMATION
  Report Type: Spontaneous
  Country: BE (occurrence: None)
  Receive Date: 20121218
  Receipt Date: 20130125
  Transmission Date: 20140127
  Serious: Yes (Other)
  Sender: FDA-Public Use
  Company Number: THQ2012A10182

PATIENT
  Age: 63 Year
  Sex: Female

DRUGS (4)
  1. LANSOPRAZOLE (LANSOPRAZOLE) [Suspect]
     Indication: REFLUX GASTRITIS
     Route: 048
     Dates: end: 2005
  2. PANTOPRAZOLE [Suspect]
     Indication: REFLUX GASTRITIS
     Dosage: WAS TAKEN EACH MORNING
     Route: 048
     Dates: start: 2005, end: 2005
  3. OMEPRAZOLE [Suspect]
     Dates: start: 1995, end: 2005
  4. OMEPRAZOLE [Suspect]
     Dates: start: 1995, end: 2005

REACTIONS (12)
  - Rash papular [None]
  - Rash erythematous [None]
  - Pruritus [None]
  - Burning sensation [None]
  - Drug hypersensitivity [None]
  - Dry mouth [None]
  - Dizziness [None]
  - Rash [None]
  - Prurigo [None]
  - Rash [None]
  - Scar [None]
  - Drug ineffective [None]
